FAERS Safety Report 13925971 (Version 5)
Quarter: 2019Q1

REPORT INFORMATION
  Report Type: Spontaneous
  Country: US (occurrence: US)
  Receive Date: 20170831
  Receipt Date: 20190320
  Transmission Date: 20190417
  Serious: No
  Sender: FDA-Public Use
  Company Number: US-SUNOVION-2016SUN003592

PATIENT

DRUGS (3)
  1. DIAZEPAM. [Concomitant]
     Active Substance: DIAZEPAM
  2. LATUDA [Suspect]
     Active Substance: LURASIDONE HYDROCHLORIDE
     Dosage: UNK
     Route: 048
  3. CODEINE [Concomitant]
     Active Substance: CODEINE

REACTIONS (12)
  - Agitation [Unknown]
  - Sleep disorder [Unknown]
  - Therapeutic response shortened [Unknown]
  - Medication error [Unknown]
  - Insomnia [Recovering/Resolving]
  - Psychomotor hyperactivity [Unknown]
  - Feeling abnormal [Unknown]
  - Middle insomnia [Unknown]
  - Restlessness [Unknown]
  - Boredom [Unknown]
  - Anxiety [Unknown]
  - Sedation [Unknown]
